FAERS Safety Report 5782991-X (Version None)
Quarter: 2008Q2

REPORT INFORMATION
  Report Type: 
  Country: None (occurrence: None)
  Receive Date: 20080619
  Receipt Date: 20080619
  Transmission Date: 20081010
  Serious: Yes (Hospitalization)
  Sender: FDA-Public Use
  Company Number: None

PATIENT
  Age: 46 Year
  Sex: Male
  Weight: 55 kg

DRUGS (2)
  1. AMITRIPTYLINE HCL [Suspect]
     Indication: DEPRESSION
     Dosage: 1 TAB AT BEDTIME PO
     Route: 048
     Dates: start: 20080416
  2. PHENOBARBITAL TAB [Suspect]
     Indication: CONVULSION
     Dosage: 1 TAB BID PO
     Route: 048
     Dates: start: 20070821

REACTIONS (3)
  - CONFUSIONAL STATE [None]
  - OVERDOSE [None]
  - SEDATION [None]
